APPROVED DRUG PRODUCT: ADRUCIL
Active Ingredient: FLUOROURACIL
Strength: 50MG/ML
Dosage Form/Route: INJECTABLE;INJECTION
Application: A040023 | Product #001
Applicant: TEVA PARENTERAL MEDICINES INC
Approved: Oct 18, 1991 | RLD: No | RS: No | Type: DISCN